FAERS Safety Report 15375192 (Version 1)
Quarter: 2018Q3

REPORT INFORMATION
  Report Type: Spontaneous
  Country: AU (occurrence: AU)
  Receive Date: 20180912
  Receipt Date: 20180912
  Transmission Date: 20181010
  Serious: Yes (Other)
  Sender: FDA-Public Use
  Company Number: AU-GLAXOSMITHKLINE-AU2018GSK161648

PATIENT

DRUGS (1)
  1. TAFENOQUINE [Suspect]
     Active Substance: TAFENOQUINE
     Indication: PRODUCT USED FOR UNKNOWN INDICATION
     Dosage: UNK

REACTIONS (6)
  - Poisoning [Unknown]
  - General physical health deterioration [Unknown]
  - Post-traumatic stress disorder [Unknown]
  - Neuropsychiatric syndrome [Unknown]
  - Brain injury [Unknown]
  - Mental disorder [Unknown]
